FAERS Safety Report 7909226-3 (Version None)
Quarter: 2011Q4

REPORT INFORMATION
  Report Type: 
  Country: None (occurrence: None)
  Receive Date: 20111111
  Receipt Date: 20111020
  Transmission Date: 20120403
  Serious: No
  Sender: FDA-Public Use
  Company Number: US-ROXANE LABORATORIES, INC.-2011-RO-01525RO

PATIENT
  Age: 93 Year
  Sex: Female

DRUGS (3)
  1. OXYBUTYNIN [Concomitant]
  2. OMEPRAZOLE [Concomitant]
  3. AMLODIPINE [Suspect]
     Indication: HYPERTENSION
     Dosage: 10 MG
     Route: 048
     Dates: end: 20111019

REACTIONS (3)
  - HEART RATE INCREASED [None]
  - AORTIC OCCLUSION [None]
  - PALPITATIONS [None]
